FAERS Safety Report 10756143 (Version 1)
Quarter: 2015Q1

REPORT INFORMATION
  Report Type: Spontaneous
  Country: GB (occurrence: GB)
  Receive Date: 20150202
  Receipt Date: 20150202
  Transmission Date: 20150721
  Serious: Yes (Death, Other)
  Sender: FDA-Public Use
  Company Number: GB-009507513-1501GBR012339

PATIENT
  Sex: Female

DRUGS (2)
  1. TRUVADA [Suspect]
     Active Substance: EMTRICITABINE\TENOFOVIR DISOPROXIL FUMARATE
     Dosage: 1 DF, QD
     Route: 064
     Dates: start: 20140512
  2. ISENTRESS [Suspect]
     Active Substance: RALTEGRAVIR POTASSIUM
     Dosage: 800 MG/ DAY
     Route: 064
     Dates: start: 20140512

REACTIONS (3)
  - Foetal exposure during pregnancy [Recovered/Resolved]
  - Stress [Fatal]
  - Asphyxia [Fatal]

NARRATIVE: CASE EVENT DATE: 20140901
